FAERS Safety Report 7667419-7 (Version None)
Quarter: 2011Q3

REPORT INFORMATION
  Report Type: 
  Country: None (occurrence: None)
  Receive Date: 20110806
  Receipt Date: 20110304
  Transmission Date: 20111222
  Serious: No
  Sender: FDA-Public Use
  Company Number: US-ABBOTT-11P-163-0710387-00

PATIENT
  Sex: Male
  Weight: 88.984 kg

DRUGS (9)
  1. METOPROLOL TARTRATE [Concomitant]
     Indication: HYPERTENSION
  2. LISINOPRIL [Concomitant]
     Indication: HYPERTENSION
  3. NIASPAN [Suspect]
     Indication: HIGH DENSITY LIPOPROTEIN DECREASED
     Dates: start: 20110218
  4. FUROSEMIDE [Concomitant]
     Indication: FLUID RETENTION
  5. ALLOPURINOL [Concomitant]
     Indication: GOUT
  6. CRESTOR [Concomitant]
     Indication: HIGH DENSITY LIPOPROTEIN DECREASED
  7. NITROGLYCERIN [Concomitant]
     Indication: CHEST PAIN
  8. OMEPRAZOLE [Concomitant]
     Indication: PRODUCT USED FOR UNKNOWN INDICATION
  9. WARFARIN SODIUM [Concomitant]
     Indication: PRODUCT USED FOR UNKNOWN INDICATION

REACTIONS (1)
  - FLUSHING [None]
